FAERS Safety Report 6337935-9 (Version None)
Quarter: 2009Q3

REPORT INFORMATION
  Report Type: 
  Country: None (occurrence: None)
  Receive Date: 20090902
  Receipt Date: 20090827
  Transmission Date: 20100115
  Serious: Yes (Hospitalization)
  Sender: FDA-Public Use
  Company Number: US-GILEAD-2009-0022881

PATIENT
  Sex: Male

DRUGS (12)
  1. LETAIRIS [Suspect]
     Indication: PULMONARY ARTERIAL HYPERTENSION
     Route: 048
     Dates: start: 20080901, end: 20090627
  2. LETAIRIS [Suspect]
     Route: 048
     Dates: start: 20080901
  3. DIOVAN [Concomitant]
  4. LASIX [Concomitant]
  5. DIGOXIN [Concomitant]
  6. COREG [Concomitant]
  7. COUMADIN [Concomitant]
  8. SPIRIVA [Concomitant]
  9. DUONEB [Concomitant]
  10. LANTUS [Concomitant]
  11. LESCOL [Concomitant]
  12. ADVAIR HFA [Concomitant]

REACTIONS (3)
  - CARDIAC FAILURE CONGESTIVE [None]
  - DYSPNOEA [None]
  - OEDEMA PERIPHERAL [None]
